FAERS Safety Report 8200243 (Version 3)
Quarter: 2012Q4

REPORT INFORMATION
  Report Type: Report from Study
  Country: BR (occurrence: BR)
  Receive Date: 20111026
  Receipt Date: 20121123
  Transmission Date: 20130627
  Serious: Yes (Hospitalization)
  Sender: FDA-Public Use
  Company Number: BR-ROCHE-761329

PATIENT
  Age: 68 Year
  Sex: Female
  Weight: 43 kg

DRUGS (17)
  1. RITUXIMAB [Suspect]
     Indication: OVERLAP SYNDROME
     Dosage: ROUTE: ENDOVENOUS
     Route: 042
     Dates: start: 20100316, end: 20100330
  2. RITUXIMAB [Suspect]
     Route: 042
     Dates: start: 20100301, end: 20100314
  3. OMEPRAZOLE [Concomitant]
     Route: 065
  4. LYRICA [Concomitant]
     Route: 065
  5. PREDNISONE [Concomitant]
     Route: 065
  6. DAONIL [Concomitant]
     Route: 065
  7. METFORMIN [Concomitant]
  8. FLUOXETIN [Concomitant]
     Route: 065
  9. SUPPLEMENT NOS [Concomitant]
  10. RESPIDON [Concomitant]
     Route: 065
  11. TRAMADOL [Concomitant]
  12. NORIPURUM [Concomitant]
  13. CAPTOPRIL [Concomitant]
  14. ACETYLSALICYLIC ACID [Concomitant]
  15. FENERGAN [Concomitant]
  16. RIVOTRIL [Concomitant]
  17. PROTOS [Concomitant]

REACTIONS (8)
  - Systemic lupus erythematosus [Unknown]
  - Pneumonia [Recovered/Resolved]
  - Pulmonary embolism [Not Recovered/Not Resolved]
  - Dementia Alzheimer^s type [Unknown]
  - Pneumonia [Recovered/Resolved]
  - Device related infection [Recovered/Resolved]
  - Dysstasia [Recovered/Resolved]
  - Fistula [Not Recovered/Not Resolved]
